FAERS Safety Report 12408686 (Version 1)
Quarter: 2016Q2

REPORT INFORMATION
  Report Type: Report from Study
  Country: CA (occurrence: CA)
  Receive Date: 20160526
  Receipt Date: 20160526
  Transmission Date: 20160815
  Serious: Yes (Death, Hospitalization, Other)
  Sender: FDA-Public Use
  Company Number: CA-GILEAD-2016-0214395

PATIENT
  Age: 80 Year
  Sex: Male

DRUGS (1)
  1. IDELALISIB [Suspect]
     Active Substance: IDELALISIB
     Indication: NON-HODGKIN^S LYMPHOMA UNSPECIFIED HISTOLOGY INDOLENT
     Dosage: 150 MG, UNK
     Route: 048
     Dates: start: 20160421, end: 2016

REACTIONS (4)
  - Bacteraemia [Unknown]
  - Sepsis [Unknown]
  - Death [Fatal]
  - Febrile neutropenia [Unknown]

NARRATIVE: CASE EVENT DATE: 2016
